FAERS Safety Report 7772490-8 (Version None)
Quarter: 2011Q3

REPORT INFORMATION
  Report Type: 
  Country: None (occurrence: None)
  Receive Date: 20110922
  Receipt Date: 20110701
  Transmission Date: 20111222
  Serious: No
  Sender: FDA-Public Use
  Company Number: US-ASTRAZENECA-2010SE54891

PATIENT
  Age: 49 Year
  Sex: Male
  Weight: 86.6 kg

DRUGS (8)
  1. SEROQUEL [Suspect]
     Route: 048
  2. ATIVAN [Concomitant]
  3. SEROQUEL [Suspect]
     Indication: SLEEP DISORDER
     Dosage: 37.5 - 100 MG DAILY
     Route: 048
     Dates: start: 20100301
  4. SEROQUEL [Suspect]
     Route: 048
  5. SEROQUEL [Suspect]
     Route: 048
  6. REMERON [Concomitant]
     Indication: AFFECTIVE DISORDER
  7. SEROQUEL [Suspect]
     Indication: AFFECTIVE DISORDER
     Dosage: 37.5 - 100 MG DAILY
     Route: 048
     Dates: start: 20100301
  8. SEROQUEL [Suspect]
     Route: 048

REACTIONS (4)
  - PROSTATITIS [None]
  - DRY MOUTH [None]
  - BLOOD TESTOSTERONE DECREASED [None]
  - SOMNOLENCE [None]
